FAERS Safety Report 6555649-7 (Version None)
Quarter: 2010Q1

REPORT INFORMATION
  Report Type: 
  Country: None (occurrence: None)
  Receive Date: 20100128
  Receipt Date: 20100114
  Transmission Date: 20100710
  Serious: Yes (Other)
  Sender: FDA-Public Use
  Company Number: PHEH2010US00878

PATIENT
  Age: 62 Year
  Sex: Female

DRUGS (4)
  1. GENTEAL (NVO) [Suspect]
     Indication: DRY EYE
     Dosage: UNK
  2. GENTEAL (NVO) [Suspect]
     Dosage: UNK
  3. RESTASIS [Concomitant]
  4. PREMPRO [Concomitant]
     Indication: DRY EYE
     Dosage: UNK

REACTIONS (3)
  - CATARACT OPERATION [None]
  - FOREIGN BODY SENSATION IN EYES [None]
  - VISION BLURRED [None]
